FAERS Safety Report 24742813 (Version 1)
Quarter: 2024Q4

REPORT INFORMATION
  Report Type: Spontaneous
  Country: PL (occurrence: PL)
  Receive Date: 20241217
  Receipt Date: 20241217
  Transmission Date: 20250115
  Serious: Yes (Other)
  Sender: GILEAD
  Company Number: PL-GILEAD-2024-0696033

PATIENT
  Age: 31 Year
  Sex: Female

DRUGS (4)
  1. BIKTARVY [Suspect]
     Active Substance: BICTEGRAVIR SODIUM\EMTRICITABINE\TENOFOVIR ALAFENAMIDE FUMARATE
     Indication: HIV infection
     Dosage: UNK
     Route: 065
  2. COTRIMOXAZOLE [Concomitant]
     Active Substance: SULFAMETHOXAZOLE\TRIMETHOPRIM
  3. PENTAMIDINE [Concomitant]
     Active Substance: PENTAMIDINE
  4. PREDNISONE [Concomitant]
     Active Substance: PREDNISONE

REACTIONS (3)
  - Thrombocytopenia [Recovering/Resolving]
  - Hepatitis E [Not Recovered/Not Resolved]
  - Immunodeficiency [Not Recovered/Not Resolved]
